FAERS Safety Report 19191625 (Version 2)
Quarter: 2021Q2

REPORT INFORMATION
  Report Type: Spontaneous
  Country: JP (occurrence: JP)
  Receive Date: 20210428
  Receipt Date: 20210610
  Transmission Date: 20210717
  Serious: Yes (Death)
  Sender: FDA-Public Use
  Company Number: JP-GILEAD-2021-0526930

PATIENT
  Age: 88 Year
  Sex: Female
  Weight: 37 kg

DRUGS (3)
  1. DEXAMETHASONE SODIUM PHOSPHATE. [Concomitant]
     Active Substance: DEXAMETHASONE SODIUM PHOSPHATE
     Indication: COVID-19
     Dosage: UNK MG
     Route: 041
     Dates: start: 20210421, end: 20210427
  2. HEPARIN [Concomitant]
     Active Substance: HEPARIN SODIUM
     Dosage: 5 ML, QID
     Route: 041
     Dates: start: 20210422, end: 20210426
  3. VEKLURY [Suspect]
     Active Substance: REMDESIVIR
     Indication: COVID-19
     Dosage: 200 MG, QD
     Route: 041
     Dates: start: 20210422, end: 20210422

REACTIONS (2)
  - Renal impairment [Unknown]
  - COVID-19 [Fatal]

NARRATIVE: CASE EVENT DATE: 20210423
